FAERS Safety Report 5752412-1 (Version None)
Quarter: 2008Q2

REPORT INFORMATION
  Report Type: 
  Country: None (occurrence: None)
  Receive Date: 20080529
  Receipt Date: 20080519
  Transmission Date: 20081010
  Serious: Yes (Other)
  Sender: FDA-Public Use
  Company Number: B0506971A

PATIENT
  Age: 80 Year
  Sex: Male
  Weight: 70 kg

DRUGS (5)
  1. ARIXTRA [Suspect]
     Indication: PHLEBITIS
     Dosage: 7.5MG PER DAY
     Route: 058
     Dates: start: 20070928, end: 20080111
  2. SERETIDE [Concomitant]
     Route: 055
  3. HEMIGOXINE [Concomitant]
     Route: 065
  4. VASTAREL [Concomitant]
     Route: 065
  5. STAGID [Concomitant]
     Route: 065

REACTIONS (5)
  - ATRIAL THROMBOSIS [None]
  - DRUG INEFFECTIVE [None]
  - INCORRECT DRUG ADMINISTRATION DURATION [None]
  - PULMONARY EMBOLISM [None]
  - VENOUS THROMBOSIS [None]
